FAERS Safety Report 13114555 (Version 1)
Quarter: 2017Q1

REPORT INFORMATION
  Report Type: Spontaneous
  Country: US (occurrence: US)
  Receive Date: 20170113
  Receipt Date: 20170113
  Transmission Date: 20170428
  Serious: No
  Sender: FDA-Public Use
  Company Number: US-UNICHEM LABORATORIES LIMITED-UCM201602-000033

PATIENT
  Sex: Female

DRUGS (4)
  1. MELOXICAM. [Suspect]
     Active Substance: MELOXICAM
     Indication: ARTHRALGIA
     Dates: start: 201501
  2. HYDROXYCHLOROQUINE [Concomitant]
     Active Substance: HYDROXYCHLOROQUINE
  3. MONTELUKAST [Concomitant]
     Active Substance: MONTELUKAST SODIUM
  4. PRILOSEC [Concomitant]
     Active Substance: OMEPRAZOLE MAGNESIUM

REACTIONS (5)
  - Muscle spasms [Recovering/Resolving]
  - Eczema [Recovering/Resolving]
  - Weight increased [Recovering/Resolving]
  - Abdominal pain [Recovering/Resolving]
  - Constipation [Recovering/Resolving]
